FAERS Safety Report 5906833-4 (Version None)
Quarter: 2008Q3

REPORT INFORMATION
  Report Type: 
  Country: None (occurrence: None)
  Receive Date: 20080929
  Receipt Date: 20080917
  Transmission Date: 20090109
  Serious: Yes (Death)
  Sender: FDA-Public Use
  Company Number: GXKR2008US08898

PATIENT
  Age: 56 Year
  Sex: Male

DRUGS (5)
  1. METFORMIN HCL [Suspect]
     Dosage: 500 MG, BID
  2. PANTOPRAZOLE SODIUM [Concomitant]
  3. LEVOTHYROXINE SODIUM [Concomitant]
  4. GLYBURIDE [Concomitant]
  5. CIPROFLOXACIN [Concomitant]

REACTIONS (21)
  - ABDOMINAL PAIN [None]
  - AGITATION [None]
  - BACK PAIN [None]
  - BLOOD PRESSURE INCREASED [None]
  - CARDIAC ARREST [None]
  - CARDIO-RESPIRATORY ARREST [None]
  - COOMBS POSITIVE HAEMOLYTIC ANAEMIA [None]
  - DYSPNOEA [None]
  - ELECTROMECHANICAL DISSOCIATION [None]
  - HYPERKALAEMIA [None]
  - LETHARGY [None]
  - LEUKOCYTOSIS [None]
  - METABOLIC ACIDOSIS [None]
  - PALPITATIONS [None]
  - RENAL FAILURE ACUTE [None]
  - RESPIRATORY DISTRESS [None]
  - SHOCK [None]
  - SLEEP DISORDER [None]
  - TRANSAMINASES INCREASED [None]
  - TROPONIN I INCREASED [None]
  - URINARY TRACT INFECTION [None]
